FAERS Safety Report 9658106 (Version 2)
Quarter: 2013Q4

REPORT INFORMATION
  Report Type: Spontaneous
  Country: BR (occurrence: BR)
  Receive Date: 20131030
  Receipt Date: 20131202
  Transmission Date: 20140711
  Serious: Yes (Other)
  Sender: FDA-Public Use
  Company Number: BR-PFIZER INC-2013308843

PATIENT
  Age: 53 Year
  Sex: Female
  Weight: 69 kg

DRUGS (6)
  1. ATENOLOL [Suspect]
     Indication: ANGINA PECTORIS
     Dosage: UNK
     Route: 048
     Dates: start: 201302
  2. BRILINTA [Suspect]
     Indication: ANGINA PECTORIS
     Dosage: 90 MG, 2X/DAY
     Route: 048
     Dates: start: 201308
  3. BRILINTA [Suspect]
     Dosage: 90 MG, 2X/DAY
     Route: 048
  4. ENALAPRIL [Concomitant]
     Indication: ANGINA PECTORIS
     Dosage: UNK
     Route: 065
     Dates: start: 201302
  5. ASA [Concomitant]
     Indication: ANGINA PECTORIS
     Dosage: 1 DF, DAILY
     Route: 065
     Dates: start: 201302
  6. SUSTRATE [Concomitant]
     Indication: ANGINA PECTORIS
     Dosage: UNK
     Route: 065
     Dates: start: 201302

REACTIONS (5)
  - Haematochezia [Unknown]
  - Exercise test abnormal [Unknown]
  - Chest pain [Not Recovered/Not Resolved]
  - Haematoma [Not Recovered/Not Resolved]
  - Gingival bleeding [Recovered/Resolved]
